FAERS Safety Report 6690335-4 (Version None)
Quarter: 2010Q2

REPORT INFORMATION
  Report Type: 
  Country: None (occurrence: None)
  Receive Date: 20100421
  Receipt Date: 20100415
  Transmission Date: 20101027
  Serious: Yes (Hospitalization)
  Sender: FDA-Public Use
  Company Number: DE-PERRIGO-10DE008812

PATIENT
  Age: 41 Year
  Sex: Female

DRUGS (1)
  1. ACETAMINOPHEN SLOW RELEASE [Suspect]
     Indication: DRUG USE FOR UNKNOWN INDICATION
     Dosage: UNK
     Route: 048

REACTIONS (6)
  - CHEST PAIN [None]
  - DYSPHAGIA [None]
  - OESOPHAGEAL HAEMORRHAGE [None]
  - OESOPHAGEAL OBSTRUCTION [None]
  - OESOPHAGEAL PERFORATION [None]
  - OESOPHAGEAL STENOSIS [None]
